FAERS Safety Report 13787503 (Version 1)
Quarter: 2017Q3

REPORT INFORMATION
  Report Type: Spontaneous
  Country: US (occurrence: US)
  Receive Date: 20170725
  Receipt Date: 20170725
  Transmission Date: 20171127
  Serious: No
  Sender: FDA-Public Use
  Company Number: US-JNJFOC-20170705584

PATIENT
  Sex: Male
  Weight: 79.38 kg

DRUGS (3)
  1. TYLENOL [Suspect]
     Active Substance: ACETAMINOPHEN
     Route: 065
  2. PREPARATION H NOS [Concomitant]
     Active Substance: COCOA BUTTER\PETROLATUM\PHENYLEPHRINE HYDROCHLORIDE\PHENYLEPHRINE HYDROCHLORIDE OR MINERAL OIL
     Indication: HAEMORRHOIDS
     Route: 065
     Dates: start: 201705
  3. TYLENOL [Suspect]
     Active Substance: ACETAMINOPHEN
     Indication: HAEMORRHOIDS
     Route: 065
     Dates: start: 2017

REACTIONS (1)
  - Drug ineffective for unapproved indication [Unknown]
